FAERS Safety Report 6085003-6 (Version None)
Quarter: 2009Q1

REPORT INFORMATION
  Report Type: 
  Country: None (occurrence: None)
  Receive Date: 20090220
  Receipt Date: 20090211
  Transmission Date: 20090719
  Serious: Yes (Other)
  Sender: FDA-Public Use
  Company Number: US-AMGEN-QUU313193

PATIENT
  Sex: Female

DRUGS (1)
  1. ENBREL [Suspect]
     Indication: RHEUMATOID ARTHRITIS
     Route: 058

REACTIONS (4)
  - ANTIPHOSPHOLIPID SYNDROME [None]
  - CEREBROVASCULAR ACCIDENT [None]
  - RETINAL ARTERY THROMBOSIS [None]
  - UNEVALUABLE EVENT [None]
